FAERS Safety Report 8845012 (Version 1)
Quarter: 2012Q4

REPORT INFORMATION
  Report Type: 
  Country: JP (occurrence: JP)
  Receive Date: 20121017
  Receipt Date: 20121017
  Transmission Date: 20130627
  Serious: Yes (Other)
  Sender: FDA-Public Use
  Company Number: JP-PFIZER INC-2012246607

PATIENT
  Age: 37 Year
  Sex: Male

DRUGS (2)
  1. SELARA [Suspect]
     Dosage: UNK
     Route: 048
  2. SELARA [Suspect]
     Dosage: 50 mg, 30 tablets
     Route: 048
     Dates: start: 20121004, end: 20121004

REACTIONS (3)
  - Suicide attempt [Unknown]
  - Intentional overdose [Unknown]
  - Blood pressure increased [Unknown]
